FAERS Safety Report 8146078-3 (Version None)
Quarter: 2012Q1

REPORT INFORMATION
  Report Type: 
  Country: None (occurrence: None)
  Receive Date: 20120217
  Receipt Date: 20120202
  Transmission Date: 20120608
  Serious: Yes (Death, Hospitalization)
  Sender: FDA-Public Use
  Company Number: US-ASTELLAS-2012US001157

PATIENT
  Sex: Female
  Weight: 60 kg

DRUGS (1)
  1. TARCEVA [Suspect]
     Indication: PRODUCT USED FOR UNKNOWN INDICATION
     Dosage: UNK
     Route: 048
     Dates: start: 20071001

REACTIONS (7)
  - PNEUMOTHORAX [None]
  - LUNG NEOPLASM MALIGNANT [None]
  - MALIGNANT PLEURAL EFFUSION [None]
  - GENERAL PHYSICAL HEALTH DETERIORATION [None]
  - TACHYCARDIA [None]
  - DEATH [None]
  - OEDEMA PERIPHERAL [None]
